FAERS Safety Report 8550130-8 (Version None)
Quarter: 2012Q3

REPORT INFORMATION
  Report Type: 
  Country: None (occurrence: None)
  Receive Date: 20120718
  Receipt Date: 20120706
  Transmission Date: 20120928
  Serious: Yes (Hospitalization)
  Sender: FDA-Public Use
  Company Number: 201207021

PATIENT
  Age: 59 Year
  Sex: Male
  Weight: 128.8216 kg

DRUGS (9)
  1. INDOMETHACIN [Concomitant]
  2. FUROSEMIDE [Concomitant]
  3. ASPIRIN [Concomitant]
  4. POTASSIUIM (POTASSIUM) [Concomitant]
  5. LIPITOR [Concomitant]
  6. ANTITHROMBOTIC AGENTS (ANTITHROMBOTIC AGENTS) [Concomitant]
  7. TESTIM [Suspect]
     Indication: BLOOD TESTOSTERONE DECREASED
     Dosage: 50 MG, 1 IN 1 D, TRANSDERMAL
     Route: 062
     Dates: start: 20120501
  8. QUINAPRIL HCL [Concomitant]
  9. CARVEDILOL [Concomitant]

REACTIONS (1)
  - ABSCESS [None]
